FAERS Safety Report 9688015 (Version 3)
Quarter: 2014Q1

REPORT INFORMATION
  Report Type: Report from Study
  Country: IN (occurrence: IN)
  Receive Date: 20131114
  Receipt Date: 20140203
  Transmission Date: 20141002
  Serious: Yes (Death, Hospitalization)
  Sender: FDA-Public Use
  Company Number: PHHY2013IN129532

PATIENT
  Age: 86 Year
  Sex: Male
  Weight: 68 kg

DRUGS (5)
  1. EXELON PATCH [Suspect]
     Indication: DEMENTIA ALZHEIMER^S TYPE
     Dosage: 4.6 MG, DAILY (5 CM)
     Route: 062
  2. QUETIAPIN [Concomitant]
     Indication: SCHIZOPHRENIA
     Dosage: UNK UKN, DAILY DOSING
     Route: 048
  3. DEPLAT [Concomitant]
     Indication: ANTIPLATELET THERAPY
     Dosage: UNK UKN, DAILY DOSING
     Route: 048
  4. ASTHALIN//SALBUTAMOL [Concomitant]
     Indication: BRONCHOSPASM
     Dosage: UNK UKN, DOSING REGIMEN
     Route: 055
  5. ELKAR [Concomitant]
     Indication: SUPPLEMENTATION THERAPY
     Dosage: UNK UKN, DAILY DOSING
     Route: 048

REACTIONS (8)
  - Bradycardia [Fatal]
  - Respiratory disorder [Unknown]
  - Quality of life decreased [Unknown]
  - Chest pain [Unknown]
  - Decreased appetite [Unknown]
  - Hypokinesia [Unknown]
  - Repetitive speech [Unknown]
  - Tremor [Unknown]
